FAERS Safety Report 6679534-5 (Version None)
Quarter: 2010Q2

REPORT INFORMATION
  Report Type: 
  Country: None (occurrence: None)
  Receive Date: 20100413
  Receipt Date: 20100331
  Transmission Date: 20101027
  Serious: Yes (Other)
  Sender: FDA-Public Use
  Company Number: PHHY2010US20591

PATIENT
  Sex: Female

DRUGS (10)
  1. RECLAST [Suspect]
     Indication: OSTEOPOROSIS
     Dosage: 5 MG, UNK
     Route: 042
     Dates: start: 20100325
  2. PREVACID [Concomitant]
  3. CRESTOR [Concomitant]
     Indication: BLOOD CHOLESTEROL
  4. MULTI-VITAMINS [Concomitant]
  5. CALCIUM [Concomitant]
  6. FLEXERIL [Concomitant]
  7. TRICOR [Concomitant]
  8. HYDROCHLOROTHIAZIDE [Concomitant]
  9. XANAX [Concomitant]
  10. ASPIRIN [Concomitant]
     Dosage: 81 MG DAILY

REACTIONS (8)
  - CHILLS [None]
  - CONVULSION [None]
  - FATIGUE [None]
  - FEELING ABNORMAL [None]
  - HYPOKINESIA [None]
  - INFLUENZA LIKE ILLNESS [None]
  - MYDRIASIS [None]
  - PYREXIA [None]
